FAERS Safety Report 24546171 (Version 1)
Quarter: 2024Q4

REPORT INFORMATION
  Report Type: Spontaneous
  Country: US (occurrence: US)
  Receive Date: 20241024
  Receipt Date: 20241024
  Transmission Date: 20250115
  Serious: Yes (Death)
  Sender: DOMPE FARMACEUTICI
  Company Number: US-FARMAPROD-202308-202404-1640

PATIENT
  Age: 76 Year
  Sex: Male

DRUGS (17)
  1. OXERVATE [Suspect]
     Active Substance: CENEGERMIN-BKBJ
     Indication: Neurotrophic keratopathy
     Dosage: AEROSOL POWDER, BREATH ACTIVATED (EA)
     Route: 047
     Dates: start: 20240409
  2. OXERVATE [Suspect]
     Active Substance: CENEGERMIN-BKBJ
  3. TAMSULOSIN HYDROCHLORIDE [Concomitant]
     Active Substance: TAMSULOSIN HYDROCHLORIDE
  4. ATORVASTATIN CALCIUM [Concomitant]
     Active Substance: ATORVASTATIN CALCIUM
  5. NITROGLYCERIN [Concomitant]
     Active Substance: NITROGLYCERIN
  6. LORATA-DINE D [Concomitant]
     Dosage: 10MG-240MG, 24 HOURS
  7. METOPROLOL TARTRATE [Concomitant]
     Active Substance: METOPROLOL TARTRATE
  8. GLIPIZIDE [Concomitant]
     Active Substance: GLIPIZIDE
  9. BRILINTA [Concomitant]
     Active Substance: TICAGRELOR
  10. PREGABALIN [Concomitant]
     Active Substance: PREGABALIN
  11. ASPIRIN [Concomitant]
     Active Substance: ASPIRIN
  12. TRESIBA [Concomitant]
     Active Substance: INSULIN DEGLUDEC
     Dosage: FLEXTOUCH U-200
  13. METFORMIN HYDROCHLORIDE [Concomitant]
     Active Substance: METFORMIN HYDROCHLORIDE
  14. LISINOPRIL [Concomitant]
     Active Substance: LISINOPRIL
  15. ESCITALOPRAM OXALATE [Concomitant]
     Active Substance: ESCITALOPRAM OXALATE
  16. OMEPRAZOLE [Concomitant]
     Active Substance: OMEPRAZOLE
  17. PROAIR RESPICLICK [Concomitant]
     Active Substance: ALBUTEROL SULFATE

REACTIONS (2)
  - Death [Fatal]
  - Underdose [Unknown]

NARRATIVE: CASE EVENT DATE: 20240422
